FAERS Safety Report 5351002-2 (Version None)
Quarter: 2007Q2

REPORT INFORMATION
  Report Type: 
  Country: None (occurrence: None)
  Receive Date: 20070608
  Receipt Date: 20070412
  Transmission Date: 20071010
  Serious: Yes (Hospitalization)
  Sender: FDA-Public Use
  Company Number: ES-SANOFI-SYNTHELABO-A01200703879

PATIENT
  Age: 63 Year
  Sex: Male

DRUGS (10)
  1. LISINOPRIL [Concomitant]
     Indication: DRUG USE FOR UNKNOWN INDICATION
     Route: 065
  2. ACETYLSALICYLIC ACID SRT [Concomitant]
     Indication: CORONARY ANGIOPLASTY
     Route: 065
  3. ACETYLSALICYLIC ACID SRT [Concomitant]
     Indication: STENT PLACEMENT
     Route: 065
  4. ACETYLSALICYLIC ACID SRT [Concomitant]
     Indication: MYOCARDIAL INFARCTION
     Route: 065
  5. PLAVIX [Suspect]
     Indication: CORONARY ANGIOPLASTY
     Dosage: 300 LOADING DOSE FOLLOWED BY 75 MG DAILY
     Route: 048
  6. PLAVIX [Suspect]
     Indication: STENT PLACEMENT
     Dosage: 300 LOADING DOSE FOLLOWED BY 75 MG DAILY
     Route: 048
  7. PLAVIX [Suspect]
     Indication: MYOCARDIAL INFARCTION
     Dosage: 300 LOADING DOSE FOLLOWED BY 75 MG DAILY
     Route: 048
  8. BROMAZEPAM [Concomitant]
     Indication: DRUG USE FOR UNKNOWN INDICATION
     Route: 065
  9. CARVEDILOL [Concomitant]
     Indication: DRUG USE FOR UNKNOWN INDICATION
     Route: 065
  10. ATORVASTATIN CALCIUM [Concomitant]
     Indication: DRUG USE FOR UNKNOWN INDICATION
     Route: 065

REACTIONS (2)
  - HEPATOTOXICITY [None]
  - SYSTEMIC INFLAMMATORY RESPONSE SYNDROME [None]
